FAERS Safety Report 9530672 (Version 2)
Quarter: 2013Q3

REPORT INFORMATION
  Report Type: Report from Study
  Country: US (occurrence: US)
  Receive Date: 20130918
  Receipt Date: 20130918
  Transmission Date: 20140515
  Serious: Yes (Other)
  Sender: FDA-Public Use
  Company Number: US-ROCHE-1275283

PATIENT
  Sex: Male

DRUGS (3)
  1. LUCENTIS [Suspect]
     Indication: GLAUCOMA
     Route: 050
     Dates: start: 20130819, end: 20130819
  2. LUCENTIS [Suspect]
     Route: 050
     Dates: start: 20130820
  3. COMBIGAN [Concomitant]

REACTIONS (3)
  - Photopsia [Unknown]
  - Lacrimation increased [Unknown]
  - Vitreous floaters [Unknown]
